FAERS Safety Report 18604404 (Version 1)
Quarter: 2020Q4

REPORT INFORMATION
  Report Type: Other
  Country: GB (occurrence: GB)
  Receive Date: 20201211
  Receipt Date: 20201211
  Transmission Date: 20210114
  Serious: Yes (Life-Threatening, Hospitalization)
  Sender: FDA-Public Use
  Company Number: GB-STRIDES ARCOLAB LIMITED-2020SP015213

PATIENT
  Age: 18 Month
  Sex: Male

DRUGS (4)
  1. HYDROCORTISONE. [Suspect]
     Active Substance: HYDROCORTISONE
     Dosage: 1 MILLIGRAM (1.5MG IN THE MORNING, 1.5MG AT LUNCHTIME AND 1MG AT NIGHT (CAPSULE))
     Route: 048
     Dates: start: 20201119, end: 20201121
  2. HYDROCORTISONE. [Suspect]
     Active Substance: HYDROCORTISONE
     Indication: SEPTO-OPTIC DYSPLASIA
     Dosage: 10 MILLIGRAM (10MG HYDROCORTISONE SOLUBLE TABLET DISSOLVED IN 10MLS OF WATER)
     Route: 048
     Dates: start: 202009
  3. HYDROCORTISONE. [Suspect]
     Active Substance: HYDROCORTISONE
     Dosage: 0.5 MILLIGRAM (1.5MG IN THE MORNING, 1.5MG AT LUNCHTIME AND 1MG AT NIGHT)
     Route: 048
     Dates: start: 20201119, end: 20201121
  4. LEVOTHYROXINE. [Concomitant]
     Active Substance: LEVOTHYROXINE
     Indication: HYPOTHYROIDISM
     Dosage: 37.5 MICROGRAM
     Route: 065

REACTIONS (4)
  - Decreased activity [Recovered/Resolved]
  - Adrenocortical insufficiency acute [Recovered/Resolved]
  - Drug ineffective [Unknown]
  - Syncope [Recovered/Resolved]

NARRATIVE: CASE EVENT DATE: 20201121
